FAERS Safety Report 6433226-6 (Version None)
Quarter: 2009Q4

REPORT INFORMATION
  Report Type: 
  Country: None (occurrence: None)
  Receive Date: 20091109
  Receipt Date: 20091109
  Transmission Date: 20100525
  Serious: Yes (Hospitalization)
  Sender: FDA-Public Use
  Company Number: US-PFIZER INC-2009275089

PATIENT
  Sex: Male

DRUGS (5)
  1. LIPITOR [Suspect]
     Dosage: UNK
  2. CASODEX [Suspect]
     Dosage: UNK
  3. TAMSULOSIN [Suspect]
     Dosage: UNK
  4. PROSCAR [Suspect]
     Dosage: UNK
  5. ROLAIDS [Suspect]
     Dosage: UNK

REACTIONS (1)
  - BLOOD SODIUM DECREASED [None]
